FAERS Safety Report 25282782 (Version 1)
Quarter: 2025Q2

REPORT INFORMATION
  Report Type: Spontaneous
  Country: FR (occurrence: FR)
  Receive Date: 20250508
  Receipt Date: 20250508
  Transmission Date: 20250717
  Serious: Yes (Death, Congenital Anomaly, Other)
  Sender: AUROBINDO
  Company Number: FR-AFSSAPS-PO2025000429

PATIENT
  Sex: Female

DRUGS (2)
  1. GABAPENTIN [Suspect]
     Active Substance: GABAPENTIN
     Indication: Neuropathy peripheral
     Dosage: 100 MILLIGRAM, ONCE A DAY
     Route: 048
     Dates: end: 202405
  2. AMITRIPTYLINE [Suspect]
     Active Substance: AMITRIPTYLINE
     Indication: Neuropathy peripheral
     Dosage: 25 MILLIGRAM, ONCE A DAY
     Route: 064
     Dates: end: 202405

REACTIONS (4)
  - Craniorachischisis [Fatal]
  - Gastrointestinal malformation [Fatal]
  - Umbilical cord short [Fatal]
  - Maternal exposure during pregnancy [Recovered/Resolved]

NARRATIVE: CASE EVENT DATE: 20240519
